FAERS Safety Report 7833957-7 (Version None)
Quarter: 2011Q4

REPORT INFORMATION
  Report Type: 
  Country: None (occurrence: None)
  Receive Date: 20111020
  Receipt Date: 20111006
  Transmission Date: 20120403
  Serious: Yes (Death, Life-Threatening, Hospitalization)
  Sender: FDA-Public Use
  Company Number: 2011MA014926

PATIENT
  Age: 58 Year
  Sex: Female

DRUGS (8)
  1. SLOW-ACTING INSULIN [Concomitant]
  2. BENDROFLUMETHIAZIDE [Concomitant]
  3. AMITRIPTYLINE HCL [Concomitant]
  4. SIMVASTATIN [Concomitant]
  5. METFORMIN HCL [Concomitant]
  6. CITALOPRAM HYDROBROMIDE [Suspect]
     Dosage: 20 MG; QD
  7. RAPID-ACTING INSULIN [Concomitant]
  8. ASPIRIN [Concomitant]

REACTIONS (8)
  - DIZZINESS [None]
  - ATAXIA [None]
  - MULTI-ORGAN FAILURE [None]
  - SEROTONIN SYNDROME [None]
  - HEAD INJURY [None]
  - RHABDOMYOLYSIS [None]
  - WOUND HAEMORRHAGE [None]
  - DISSEMINATED INTRAVASCULAR COAGULATION [None]
